FAERS Safety Report 23470263 (Version 1)
Quarter: 2024Q1

REPORT INFORMATION
  Report Type: Spontaneous
  Country: US (occurrence: None)
  Receive Date: 20240201
  Receipt Date: 20240201
  Transmission Date: 20240410
  Serious: Yes (Death, Hospitalization)
  Sender: FDA-Public Use
  Company Number: None

PATIENT
  Age: 44 Year
  Sex: Male
  Weight: 86 kg

DRUGS (1)
  1. WARFARIN [Suspect]
     Active Substance: WARFARIN
     Indication: Pulmonary embolism
     Dosage: FREQUENCY : DAILY;?
     Route: 048
     Dates: start: 20230501, end: 20231227

REACTIONS (4)
  - Cerebellar haemorrhage [None]
  - Basal ganglia haemorrhage [None]
  - Blood pressure increased [None]
  - Cerebral mass effect [None]

NARRATIVE: CASE EVENT DATE: 20231227
